FAERS Safety Report 15033861 (Version 2)
Quarter: 2018Q3

REPORT INFORMATION
  Report Type: Report from Study
  Country: None (occurrence: CA)
  Receive Date: 20180619
  Receipt Date: 20180724
  Transmission Date: 20181010
  Serious: Yes (Death, Hospitalization)
  Sender: FDA-Public Use
  Company Number: CA-ABBVIE-18K-028-2392953-00

PATIENT
  Age: 60 Year
  Sex: Female
  Weight: 65 kg

DRUGS (1)
  1. HUMIRA [Suspect]
     Active Substance: ADALIMUMAB
     Indication: RHEUMATOID ARTHRITIS
     Route: 058
     Dates: start: 20151119

REACTIONS (4)
  - Clostridium difficile colitis [Fatal]
  - Septic shock [Fatal]
  - Confusional state [Unknown]
  - Renal failure [Unknown]

NARRATIVE: CASE EVENT DATE: 201709
